FAERS Safety Report 9480802 (Version 1)
Quarter: 2013Q3

REPORT INFORMATION
  Report Type: Spontaneous
  Country: US (occurrence: US)
  Receive Date: 20130828
  Receipt Date: 20130828
  Transmission Date: 20140515
  Serious: Yes (Hospitalization)
  Sender: FDA-Public Use
  Company Number: US-AMGEN-KDL122972

PATIENT
  Age: 61 Year
  Sex: Female

DRUGS (2)
  1. ENBREL [Suspect]
     Indication: RHEUMATOID ARTHRITIS
     Dosage: 50 MG, 2 TIMES/WK
     Route: 058
     Dates: start: 20050101
  2. ANALGESICS [Concomitant]
     Dosage: UNK UNK, UNK

REACTIONS (3)
  - Overdose [Unknown]
  - Confusional state [Unknown]
  - Pharyngitis streptococcal [Unknown]
